FAERS Safety Report 9164731 (Version 1)
Quarter: 2013Q1

REPORT INFORMATION
  Report Type: Spontaneous
  Country: US (occurrence: US)
  Receive Date: 20130315
  Receipt Date: 20130315
  Transmission Date: 20140127
  Serious: No
  Sender: FDA-Public Use
  Company Number: US-PFIZER INC-2013082158

PATIENT
  Age: 4 Year
  Sex: Female
  Weight: 11.79 kg

DRUGS (1)
  1. ADVIL [Suspect]
     Indication: PYREXIA
     Dosage: UNK
     Dates: start: 20130308

REACTIONS (1)
  - Rash pruritic [Unknown]
